FAERS Safety Report 16833809 (Version 4)
Quarter: 2019Q4

REPORT INFORMATION
  Report Type: Report from Study
  Country: PL (occurrence: PL)
  Receive Date: 20190920
  Receipt Date: 20191210
  Transmission Date: 20200122
  Serious: Yes (Hospitalization)
  Sender: FDA-Public Use
  Company Number: PHHO2019PL009095

PATIENT
  Age: 52 Year
  Sex: Male

DRUGS (4)
  1. BLINDED OFATUMUMAB [Suspect]
     Active Substance: OFATUMUMAB
     Indication: RELAPSING MULTIPLE SCLEROSIS
     Dosage: CODE NOT BROKEN
     Route: 058
     Dates: start: 20190818
  2. OFATUMUMAB [Suspect]
     Active Substance: OFATUMUMAB
     Indication: PRODUCT USED FOR UNKNOWN INDICATION
     Dosage: 20 MG, Q4W
     Route: 058
     Dates: start: 20190812, end: 20190825
  3. BLINDED PLACEBO [Suspect]
     Active Substance: INVESTIGATIONAL PRODUCT
     Indication: RELAPSING MULTIPLE SCLEROSIS
     Dosage: CODE NOT BROKEN
     Route: 058
     Dates: start: 20190818
  4. BLINDED NO TREATMENT RECEIVED [Suspect]
     Active Substance: INVESTIGATIONAL PRODUCT
     Indication: RELAPSING MULTIPLE SCLEROSIS
     Dosage: CODE NOT BROKEN
     Route: 058
     Dates: start: 20190818

REACTIONS (1)
  - Urosepsis [Recovered/Resolved]

NARRATIVE: CASE EVENT DATE: 20190907
